FAERS Safety Report 4306934-0 (Version None)
Quarter: 2004Q1

REPORT INFORMATION
  Report Type: 
  Country: None (occurrence: None)
  Receive Date: 20040227
  Receipt Date: 20030814
  Transmission Date: 20041129
  Serious: Yes (Hospitalization)
  Sender: FDA-Public Use
  Company Number: WAES 0308USA01526

PATIENT
  Age: 50 Year
  Sex: Male

DRUGS (1)
  1. VIOXX [Suspect]
     Route: 048
     Dates: start: 20010801

REACTIONS (4)
  - EMBOLIC CEREBRAL INFARCTION [None]
  - HEADACHE [None]
  - HYPERTENSION [None]
  - VENTRICULAR HYPERTROPHY [None]
